FAERS Safety Report 10100917 (Version 1)
Quarter: 2014Q2

REPORT INFORMATION
  Report Type: Spontaneous
  Country: CN (occurrence: CN)
  Receive Date: 20140423
  Receipt Date: 20140423
  Transmission Date: 20141212
  Serious: Yes (Other)
  Sender: FDA-Public Use
  Company Number: CN-ABBVIE-14P-035-1227472-00

PATIENT
  Age: 3 Year
  Sex: Female

DRUGS (3)
  1. VALPROATE SODIUM (DEPAKINE) [Suspect]
     Indication: EPILEPSY
     Route: 048
     Dates: start: 20120504
  2. VALPROATE SODIUM (DEPAKINE) [Suspect]
     Route: 048
     Dates: start: 201305
  3. VALPROATE SODIUM (DEPAKINE) [Suspect]
     Route: 048

REACTIONS (5)
  - Epilepsy [Recovered/Resolved]
  - Foaming at mouth [Recovered/Resolved]
  - Eye movement disorder [Recovered/Resolved]
  - Musculoskeletal stiffness [Recovered/Resolved]
  - Tremor [Recovered/Resolved]
